FAERS Safety Report 26167110 (Version 1)
Quarter: 2025Q4

REPORT INFORMATION
  Report Type: Report from Study
  Country: US (occurrence: US)
  Receive Date: 20251217
  Receipt Date: 20251217
  Transmission Date: 20260118
  Serious: Yes (Other)
  Sender: BOEHRINGER INGELHEIM
  Company Number: US-BoehringerIngelheim-2025-BI-114693

PATIENT
  Age: 74 Year
  Sex: Male

DRUGS (1)
  1. HERNEXEOS [Suspect]
     Active Substance: ZONGERTINIB
     Indication: Lung neoplasm malignant
     Dates: start: 20250901

REACTIONS (1)
  - Seizure [Recovering/Resolving]

NARRATIVE: CASE EVENT DATE: 20251030
